FAERS Safety Report 9505640 (Version 1)
Quarter: 2013Q1

REPORT INFORMATION
  Report Type: Spontaneous
  Country: US (occurrence: None)
  Receive Date: 20130220
  Receipt Date: 20130220
  Transmission Date: 20140127
  Serious: No
  Sender: FDA-Public Use
  Company Number: 1000041086

PATIENT
  Age: 86 Year
  Sex: Female

DRUGS (6)
  1. VIIBYRD [Suspect]
     Indication: DEPRESSION
     Dosage: 10 MG (10 MG, 1 IN 1 D), ORAL
     Route: 048
     Dates: start: 201211, end: 201211
  2. OXYCODONE (OXYCODONE) (OXYCODONE) [Concomitant]
  3. OMEPRAZOLE (OMEPRAZOLE) (OMEPRAZOLE) [Concomitant]
  4. LEVOTHYROXINE (LEVOTHYROXINE SODIUM) (LEVOTHYROXINE SODIUM) [Concomitant]
  5. CLOPIDOGREL (CLOPIDOGREL) (CLOPIDOGREL) [Concomitant]
  6. DILTIAZEM (DILTIAZEM HYDROCHLORIDE) (DILTIAZEM HYDROCHLORIDE) [Concomitant]

REACTIONS (2)
  - Rash [None]
  - Depression [None]
